FAERS Safety Report 11592678 (Version 1)
Quarter: 2015Q4

REPORT INFORMATION
  Report Type: Spontaneous
  Country: CA (occurrence: CA)
  Receive Date: 20151005
  Receipt Date: 20151005
  Transmission Date: 20160304
  Serious: Yes (Hospitalization)
  Sender: FDA-Public Use
  Company Number: CA-009507513-1510CAN000106

PATIENT
  Age: 85 Year
  Sex: Female

DRUGS (4)
  1. ELOCOM [Suspect]
     Active Substance: MOMETASONE FUROATE
     Indication: PRURITUS
     Dosage: 1 APPLICATION, QD
     Route: 061
     Dates: start: 201507, end: 20150925
  2. ELIQUIS [Concomitant]
     Active Substance: APIXABAN
  3. TIAZAC [Concomitant]
     Active Substance: DILTIAZEM HYDROCHLORIDE
  4. NITRO-DUR [Concomitant]
     Active Substance: NITROGLYCERIN

REACTIONS (1)
  - Chest pain [Recovering/Resolving]

NARRATIVE: CASE EVENT DATE: 20150908
